FAERS Safety Report 10241748 (Version 2)
Quarter: 2014Q3

REPORT INFORMATION
  Report Type: Report from Study
  Country: US (occurrence: US)
  Receive Date: 20140617
  Receipt Date: 20140710
  Transmission Date: 20150326
  Serious: Yes (Hospitalization)
  Sender: FDA-Public Use
  Company Number: US-ACTELION-A-US2014-100138

PATIENT
  Age: 42 Year
  Sex: Male

DRUGS (2)
  1. TRACLEER [Suspect]
     Active Substance: BOSENTAN\BOSENTAN MONOHYDRATE
     Dosage: UNK
     Route: 048
     Dates: start: 20050603, end: 20071022
  2. TRACLEER [Suspect]
     Active Substance: BOSENTAN\BOSENTAN MONOHYDRATE
     Indication: PERIPHERAL ISCHAEMIA
     Dosage: 125 MG, BID
     Route: 048
     Dates: start: 20071023

REACTIONS (1)
  - Renal failure chronic [Not Recovered/Not Resolved]
